FAERS Safety Report 8592925-0 (Version None)
Quarter: 2012Q3

REPORT INFORMATION
  Report Type: 
  Country: None (occurrence: None)
  Receive Date: 20120814
  Receipt Date: 20120802
  Transmission Date: 20120928
  Serious: Yes (Hospitalization, Other)
  Sender: FDA-Public Use
  Company Number: US-009507513-1203USA02845

PATIENT

DRUGS (12)
  1. CALCIUM (UNSPECIFIED) (+) VITAMIN D (UNSPECIFIED) [Concomitant]
     Indication: PRODUCT USED FOR UNKNOWN INDICATION
     Dosage: UNK
     Dates: start: 19900101
  2. GLUCOSAMINE [Concomitant]
     Indication: PRODUCT USED FOR UNKNOWN INDICATION
     Dosage: UNK
     Dates: start: 20000101
  3. FOSAMAX [Suspect]
     Indication: OSTEOPENIA
     Dosage: 70 MG, UNK
     Route: 048
     Dates: start: 20010101, end: 20080301
  4. NEURONTIN [Concomitant]
     Indication: OSTEOPENIA
  5. FOSAMAX [Suspect]
     Dosage: 70 MG, UNK
     Route: 048
     Dates: start: 20080401, end: 20110501
  6. MAGNESIUM (UNSPECIFIED) [Concomitant]
     Indication: PRODUCT USED FOR UNKNOWN INDICATION
     Dosage: UNK
     Dates: start: 19850101
  7. VITAMIN D [Concomitant]
     Indication: PRODUCT USED FOR UNKNOWN INDICATION
     Dosage: UNK
     Dates: start: 20000101
  8. CYANOCOBALAMIN [Concomitant]
     Indication: PRODUCT USED FOR UNKNOWN INDICATION
     Dosage: UNK
     Dates: start: 20000101
  9. GRAPE SEED OIL [Concomitant]
     Indication: PRODUCT USED FOR UNKNOWN INDICATION
     Dosage: UNK
     Dates: start: 19900101
  10. MULTI-VITAMINS [Concomitant]
     Indication: PRODUCT USED FOR UNKNOWN INDICATION
     Dosage: UNK
     Dates: start: 19800101
  11. OMEGA-3-ACID ETHYL ESTERS [Concomitant]
     Indication: PRODUCT USED FOR UNKNOWN INDICATION
     Dosage: UNK
     Dates: start: 19900101
  12. ATROVENT [Concomitant]
     Indication: HYPERSENSITIVITY

REACTIONS (50)
  - SKIN CANCER [None]
  - PERINEURIAL CYST [None]
  - SPINAL OSTEOARTHRITIS [None]
  - BANDAEMIA [None]
  - FEMUR FRACTURE [None]
  - ABORTION SPONTANEOUS [None]
  - CALCIUM DEFICIENCY [None]
  - NERVE ROOT COMPRESSION [None]
  - INTERVERTEBRAL DISC DEGENERATION [None]
  - UTERINE DISORDER [None]
  - SYNOVIAL CYST [None]
  - LIGAMENT RUPTURE [None]
  - OSTEOARTHRITIS [None]
  - ENTERITIS [None]
  - URINARY INCONTINENCE [None]
  - CELLULITIS [None]
  - HIP FRACTURE [None]
  - LEUKOCYTOSIS [None]
  - LUMBAR RADICULOPATHY [None]
  - GAIT DISTURBANCE [None]
  - CONSTIPATION [None]
  - FRACTURE NONUNION [None]
  - RENAL FAILURE ACUTE [None]
  - LOW TURNOVER OSTEOPATHY [None]
  - ARTHRITIS [None]
  - DEPRESSION [None]
  - SEXUAL DYSFUNCTION [None]
  - CHEST PAIN [None]
  - BREAST DISORDER [None]
  - PARAESTHESIA [None]
  - CARPAL TUNNEL SYNDROME [None]
  - PAIN [None]
  - BASAL CELL CARCINOMA [None]
  - STRESS FRACTURE [None]
  - CYSTOCELE [None]
  - GALLBLADDER DISORDER [None]
  - SPONDYLOLISTHESIS [None]
  - CHEST X-RAY ABNORMAL [None]
  - LIMB MALFORMATION [None]
  - BURSITIS [None]
  - NASAL SEPTUM PERFORATION [None]
  - RHEUMATOID ARTHRITIS [None]
  - ARTHROPATHY [None]
  - HEARING IMPAIRED [None]
  - OVARIAN DISORDER [None]
  - ANAEMIA [None]
  - ADVERSE EVENT [None]
  - TINNITUS [None]
  - MELANOCYTIC NAEVUS [None]
  - ARTHRALGIA [None]
